FAERS Safety Report 6046738-4 (Version None)
Quarter: 2009Q1

REPORT INFORMATION
  Report Type: 
  Country: None (occurrence: None)
  Receive Date: 20090122
  Receipt Date: 20081222
  Transmission Date: 20090719
  Serious: Yes (Other)
  Sender: FDA-Public Use
  Company Number: US-PFIZER INC-2009151253

PATIENT
  Age: 12 Year
  Sex: Female

DRUGS (11)
  1. IRINOTECAN HCL [Suspect]
     Indication: EWING'S SARCOMA
  2. DOXORUBICIN HCL [Suspect]
     Indication: EWING'S SARCOMA
  3. ETOPOSIDE [Suspect]
     Indication: EWING'S SARCOMA
     Route: 048
  4. CARBOPLATIN [Suspect]
     Indication: EWING'S SARCOMA
  5. CYCLOPHOSPHAMIDE [Suspect]
     Indication: EWING'S SARCOMA
  6. VINCRISTINE SULFATE [Suspect]
     Indication: EWING'S SARCOMA
  7. MELPHALAN [Suspect]
     Indication: EWING'S SARCOMA
  8. THIOTEPA [Suspect]
     Indication: EWING'S SARCOMA
  9. FLUDARABINE PHOSPHATE [Suspect]
     Indication: EWING'S SARCOMA
     Dosage: 50 MG/VIAL
  10. IFOSFAMIDE [Suspect]
     Indication: EWING'S SARCOMA
     Dosage: 50 MG/ML, PACKAGED IN 1 GR/20  ML AND 3 GR/60 ML SINGLE DOSE VIALS
  11. GEFITINIB [Suspect]
     Indication: EWING'S SARCOMA

REACTIONS (2)
  - MYELOPATHY [None]
  - NEUROPATHY PERIPHERAL [None]
